FAERS Safety Report 7938054-8 (Version None)
Quarter: 2011Q4

REPORT INFORMATION
  Report Type: 
  Country: None (occurrence: None)
  Receive Date: 20111123
  Receipt Date: 20111117
  Transmission Date: 20120403
  Serious: Yes (Other)
  Sender: FDA-Public Use
  Company Number: PHHY2011BR91914

PATIENT
  Age: 66 Year
  Sex: Female
  Weight: 61.5 kg

DRUGS (14)
  1. AMARYL [Concomitant]
  2. METHOTREXATE [Concomitant]
  3. INSULIN GLARGINE [Concomitant]
  4. FOSAMAX [Concomitant]
  5. STARLIX [Suspect]
     Indication: DIABETES MELLITUS
     Dosage: 120 MG, TID
     Route: 048
     Dates: start: 20010101
  6. GLIMEPIRIDE [Concomitant]
     Dosage: 6 MG, QD
     Dates: start: 20100101
  7. METICORTEN [Concomitant]
  8. OSTEOCALCIN [Concomitant]
  9. CIBRATO [Concomitant]
  10. METFORMIN [Concomitant]
     Dosage: 850 MG, BID
  11. PREDNISONE TAB [Concomitant]
     Dosage: 40 MG, QD
  12. OROXADIN [Concomitant]
  13. LIPITOR [Concomitant]
  14. PROTOS [Concomitant]

REACTIONS (4)
  - THYROID CANCER [None]
  - BLOOD TRIGLYCERIDES INCREASED [None]
  - GLYCOSYLATED HAEMOGLOBIN INCREASED [None]
  - UVEITIS [None]
